FAERS Safety Report 9731126 (Version 1)
Quarter: 2013Q4

REPORT INFORMATION
  Report Type: Report from Study
  Country: US (occurrence: US)
  Receive Date: 20131203
  Receipt Date: 20131203
  Transmission Date: 20140711
  Serious: Yes (Hospitalization, Other)
  Sender: FDA-Public Use
  Company Number: US-JNJFOC-20131116850

PATIENT
  Sex: Male
  Weight: 272.16 kg

DRUGS (5)
  1. REMICADE [Suspect]
     Indication: RHEUMATOID ARTHRITIS
     Dosage: FOUR BOTTLES SOLUTION
     Route: 042
     Dates: start: 1998
  2. IRON [Suspect]
     Indication: NUTRITIONAL SUPPLEMENTATION
     Route: 048
     Dates: start: 2003
  3. IRON [Suspect]
     Indication: NUTRITIONAL SUPPLEMENTATION
     Route: 048
  4. VITAMIN D [Concomitant]
     Route: 048
     Dates: start: 2003
  5. CALCIUM [Concomitant]
     Route: 048
     Dates: start: 2003

REACTIONS (9)
  - Intestinal obstruction [Recovered/Resolved]
  - Hernia [Recovered/Resolved]
  - Arthritis [Unknown]
  - Gait disturbance [Recovered/Resolved]
  - Fall [Recovered/Resolved]
  - Head injury [Recovered/Resolved]
  - Diarrhoea [Recovered/Resolved]
  - Faeces discoloured [Recovered/Resolved]
  - Muscle spasms [Not Recovered/Not Resolved]
